FAERS Safety Report 5742214-4 (Version None)
Quarter: 2008Q2

REPORT INFORMATION
  Report Type: 
  Country: None (occurrence: None)
  Receive Date: 20080514
  Receipt Date: 20070803
  Transmission Date: 20081010
  Serious: Yes (Other)
  Sender: FDA-Public Use
  Company Number: US200708000843

PATIENT
  Age: 31 Year
  Sex: Female
  Weight: 49.9 kg

DRUGS (1)
  1. KEFLEX [Suspect]
     Dosage: 500 MG, 4/D, ORAL
     Route: 048
     Dates: start: 20070627, end: 20070706

REACTIONS (4)
  - MIDDLE EAR DISORDER [None]
  - OTOTOXICITY [None]
  - VESTIBULAR DISORDER [None]
  - VISUAL DISTURBANCE [None]
